FAERS Safety Report 5733817-1 (Version None)
Quarter: 2008Q2

REPORT INFORMATION
  Report Type: 
  Country: None (occurrence: None)
  Receive Date: 20080509
  Receipt Date: 20080429
  Transmission Date: 20081010
  Serious: Yes (Other)
  Sender: FDA-Public Use
  Company Number: IL-ELI_LILLY_AND_COMPANY-IL200804003779

PATIENT
  Age: 80 Year
  Sex: Male
  Weight: 90 kg

DRUGS (3)
  1. BYETTA [Suspect]
     Indication: DIABETES MELLITUS
     Dosage: 5 UG, DAILY (1/D)
     Route: 058
     Dates: start: 20080311, end: 20080314
  2. LEVEMIR [Concomitant]
     Dosage: UNK, UNKNOWN
     Route: 065
  3. NOVORAPID [Concomitant]
     Dosage: UNK, UNKNOWN
     Route: 065

REACTIONS (4)
  - BLOOD GLUCOSE DECREASED [None]
  - DELUSION [None]
  - FALL [None]
  - HYPOTENSION [None]
